FAERS Safety Report 6838861-9 (Version None)
Quarter: 2010Q3

REPORT INFORMATION
  Report Type: 
  Country: None (occurrence: None)
  Receive Date: 20100713
  Receipt Date: 20070814
  Transmission Date: 20110219
  Serious: No
  Sender: FDA-Public Use
  Company Number: US-PFIZER INC-2007037006

PATIENT
  Sex: Female
  Weight: 51.26 kg

DRUGS (2)
  1. CHANTIX [Suspect]
     Indication: SMOKING CESSATION THERAPY
     Dates: start: 20061201, end: 20070201
  2. DOXYCYCLINE [Suspect]
     Indication: INFECTION
     Dates: start: 20070201, end: 20070227

REACTIONS (8)
  - ACNE [None]
  - GINGIVITIS [None]
  - INSOMNIA [None]
  - NOCTURIA [None]
  - RASH [None]
  - SWELLING [None]
  - THINKING ABNORMAL [None]
  - URTICARIA [None]
